FAERS Safety Report 18519652 (Version 1)
Quarter: 2020Q4

REPORT INFORMATION
  Report Type: Spontaneous
  Country: US (occurrence: US)
  Receive Date: 20201119
  Receipt Date: 20201119
  Transmission Date: 20210114
  Serious: Yes (Hospitalization, Disabling, Other)
  Sender: FDA-Public Use
  Company Number: US-REGENERON PHARMACEUTICALS, INC.-2020-88834

PATIENT

DRUGS (1)
  1. EYLEA [Suspect]
     Active Substance: AFLIBERCEPT
     Indication: NEOVASCULAR AGE-RELATED MACULAR DEGENERATION
     Dosage: HE HAD RECEIVED A TOTAL OF 24 AFLIBERCEPT INJECTIONS SINCE 2013.
     Route: 031

REACTIONS (11)
  - Ocular hypertension [Recovered/Resolved]
  - Retinal haemorrhage [Unknown]
  - Retinal vasculitis [Unknown]
  - Retinopathy proliferative [Unknown]
  - Choroidal detachment [Unknown]
  - Endophthalmitis [Unknown]
  - Tractional retinal detachment [Unknown]
  - Retinal detachment [Unknown]
  - Blindness [Not Recovered/Not Resolved]
  - Hypotony of eye [Unknown]
  - Necrotising retinitis [Unknown]
